FAERS Safety Report 7450241-4 (Version None)
Quarter: 2011Q2

REPORT INFORMATION
  Report Type: 
  Country: None (occurrence: None)
  Receive Date: 20110428
  Receipt Date: 20110428
  Transmission Date: 20111010
  Serious: Yes (Hospitalization, Disabling, Other)
  Sender: FDA-Public Use
  Company Number: None

PATIENT
  Age: 31 Year
  Sex: Female
  Weight: 86.1834 kg

DRUGS (2)
  1. MIRENA [Suspect]
     Indication: CONTRACEPTION
     Dates: start: 20070227, end: 20110427
  2. MIRENA [Suspect]
     Indication: CONTRACEPTION
     Dates: start: 20020227, end: 20070227

REACTIONS (10)
  - CHLOASMA [None]
  - DEPRESSION [None]
  - ILL-DEFINED DISORDER [None]
  - VAGINAL ODOUR [None]
  - LETHARGY [None]
  - ABDOMINAL DISTENSION [None]
  - MOOD SWINGS [None]
  - POSTPARTUM DEPRESSION [None]
  - EMOTIONAL DISORDER [None]
  - NIGHT SWEATS [None]
